FAERS Safety Report 9597426 (Version 1)
Quarter: 2013Q4

REPORT INFORMATION
  Report Type: Spontaneous
  Country: US (occurrence: US)
  Receive Date: 20131004
  Receipt Date: 20131004
  Transmission Date: 20140711
  Serious: No
  Sender: FDA-Public Use
  Company Number: US-AMGEN-USASP2013019204

PATIENT
  Age: 54 Year
  Sex: Female
  Weight: 99.77 kg

DRUGS (6)
  1. ENBREL [Suspect]
     Indication: RHEUMATOID ARTHRITIS
     Dosage: 50 MG, QWK
     Route: 058
  2. METHOTREXATE [Concomitant]
     Dosage: 2.5 MG, UNK
  3. CELEBREX [Concomitant]
     Dosage: 100 MG, UNK
  4. CALCIUM 500+D [Concomitant]
     Dosage: UNK
  5. VALIUM                             /00017001/ [Concomitant]
     Dosage: 5 MG, UNK
  6. HUMIRA [Concomitant]
     Dosage: UNK

REACTIONS (1)
  - Headache [Unknown]
